FAERS Safety Report 23882971 (Version 1)
Quarter: 2024Q2

REPORT INFORMATION
  Report Type: Spontaneous
  Country: GB (occurrence: GB)
  Receive Date: 20240522
  Receipt Date: 20240522
  Transmission Date: 20240716
  Serious: Yes (Other)
  Sender: FDA-Public Use
  Company Number: None

PATIENT
  Age: 79 Year
  Sex: Male
  Weight: 81 kg

DRUGS (11)
  1. RAMIPRIL [Suspect]
     Active Substance: RAMIPRIL
     Indication: Product used for unknown indication
  2. CALCIUM CARBONATE [Concomitant]
     Active Substance: CALCIUM CARBONATE
     Dosage: TAKE ONE 2-3 TIMES/DAY
     Dates: start: 20230727, end: 20240426
  3. COCODAMOL [Concomitant]
     Active Substance: ACETAMINOPHEN\CODEINE PHOSPHATE
     Dosage: TAKE 1 OR 2 4 TIMES/DAY AS REQUIRED
     Dates: start: 20230727
  4. DOXAZOSIN [Concomitant]
     Active Substance: DOXAZOSIN MESYLATE
     Dosage: TAKE ONE DAILY ANNUAL BLOOD TEST
     Dates: start: 20230727
  5. EZETIMIBE [Concomitant]
     Active Substance: EZETIMIBE
     Dosage: TAKE ONE DAILY
     Dates: start: 20230727
  6. HYALURONATE SODIUM [Concomitant]
     Active Substance: HYALURONATE SODIUM
     Dosage: USE AS DIRECTED
     Dates: start: 20240430
  7. LANSOPRAZOLE [Concomitant]
     Active Substance: LANSOPRAZOLE
     Dosage: TAKE ONE EACH MORNING FOR STOMACH PROECTION AS
     Dates: start: 20230727
  8. LISINOPRIL [Concomitant]
     Active Substance: LISINOPRIL
     Dosage: TAKE ONE DAILY ANNUAL BLOOD TEST
     Dates: start: 20240430
  9. LOSARTAN [Concomitant]
     Active Substance: LOSARTAN
     Dosage: TAKE ONE TABLET ONCE DAILY TO REDUCE BLOOD PRESSURE
     Dates: start: 20240311, end: 20240430
  10. PREDNISOLONE [Concomitant]
     Active Substance: PREDNISOLONE
     Dosage: USE AS DIRECTED BY RHEUMATOLOGY
     Dates: start: 20230413
  11. SILDENAFIL [Concomitant]
     Active Substance: SILDENAFIL
     Dosage: TAKE ONE DAILY AS RQUIRED
     Dates: start: 20230727

REACTIONS (2)
  - Lip swelling [Recovered/Resolved]
  - Flushing [Recovered/Resolved]
